FAERS Safety Report 13100542 (Version 1)
Quarter: 2017Q1

REPORT INFORMATION
  Report Type: Spontaneous
  Country: CH (occurrence: CH)
  Receive Date: 20170110
  Receipt Date: 20170110
  Transmission Date: 20170428
  Serious: Yes (Hospitalization, Other)
  Sender: FDA-Public Use
  Company Number: CH-ROCHE-1863306

PATIENT
  Age: 66 Year
  Sex: Male
  Weight: 92 kg

DRUGS (15)
  1. SPIRICORT [Concomitant]
     Active Substance: PREDNISOLONE
  2. PEMETREXED [Concomitant]
     Active Substance: PEMETREXED
     Indication: PLEURAL MESOTHELIOMA
     Route: 065
     Dates: start: 201407, end: 201410
  3. AMLODIPIN [Concomitant]
     Active Substance: AMLODIPINE BESYLATE
  4. CARBOPLATIN. [Suspect]
     Active Substance: CARBOPLATIN
     Indication: PLEURAL MESOTHELIOMA
     Route: 065
     Dates: start: 201407, end: 201410
  5. ALIMTA [Concomitant]
     Active Substance: PEMETREXED DISODIUM
     Indication: PLEURAL MESOTHELIOMA
     Route: 065
     Dates: start: 20160504, end: 2016
  6. HUMALOG MIX [Concomitant]
     Active Substance: INSULIN LISPRO
  7. FOLVITE [Concomitant]
     Active Substance: FOLIC ACID
  8. AVASTIN [Suspect]
     Active Substance: BEVACIZUMAB
     Indication: PLEURAL MESOTHELIOMA
     Route: 042
     Dates: start: 20160504, end: 20161102
  9. XARELTO [Concomitant]
     Active Substance: RIVAROXABAN
  10. AVASTIN [Suspect]
     Active Substance: BEVACIZUMAB
     Route: 042
  11. ESOMEP (SWITZERLAND) [Concomitant]
     Active Substance: ESOMEPRAZOLE
  12. LISINOPRIL. [Concomitant]
     Active Substance: LISINOPRIL
  13. CRESTOR [Concomitant]
     Active Substance: ROSUVASTATIN CALCIUM
  14. CARBOPLATIN. [Suspect]
     Active Substance: CARBOPLATIN
     Route: 065
     Dates: start: 20160504, end: 2016
  15. BELOC ZOK [Concomitant]
     Active Substance: METOPROLOL SUCCINATE

REACTIONS (9)
  - Off label use [Unknown]
  - Bronchospasm [Unknown]
  - Productive cough [Unknown]
  - Dyspnoea [Recovering/Resolving]
  - Cachexia [Unknown]
  - Hyperthyroidism [Not Recovered/Not Resolved]
  - Regurgitation [Recovered/Resolved]
  - Dysphagia [Recovered/Resolved]
  - Flushing [Unknown]

NARRATIVE: CASE EVENT DATE: 2016
